FAERS Safety Report 7931041-5 (Version None)
Quarter: 2011Q4

REPORT INFORMATION
  Report Type: 
  Country: None (occurrence: None)
  Receive Date: 20111121
  Receipt Date: 20110517
  Transmission Date: 20120403
  Serious: Yes (Life-Threatening, Hospitalization, Other)
  Sender: FDA-Public Use
  Company Number: US-BAYER-2011-043823

PATIENT
  Age: 53 Year
  Sex: Female

DRUGS (8)
  1. NUCYNTA [Concomitant]
     Dosage: 50 MG, UNK
  2. MEDROL [Concomitant]
     Dosage: 4 MG, UNK
     Dates: start: 20110216
  3. AVELOX [Suspect]
     Indication: BRONCHITIS
     Dosage: 400 MG, QD
     Route: 048
     Dates: start: 20110211
  4. AVELOX [Suspect]
     Indication: SINUSITIS
  5. TIZANIDINE HCL [Concomitant]
  6. SINGULAIR [Concomitant]
     Dosage: 10 MG, UNK
     Dates: start: 20110211
  7. MUCINEX [Concomitant]
     Dosage: UNK
     Dates: start: 20110211
  8. MOBIC [Concomitant]
     Dosage: 15 MG, UNK

REACTIONS (1)
  - VISUAL IMPAIRMENT [None]
